FAERS Safety Report 5198119-3 (Version None)
Quarter: 2006Q4

REPORT INFORMATION
  Report Type: 
  Country: None (occurrence: None)
  Receive Date: 20061228
  Receipt Date: 20061228
  Transmission Date: 20070319
  Serious: No
  Sender: FDA-Public Use
  Company Number: None

PATIENT
  Sex: Male
  Weight: 74.8435 kg

DRUGS (1)
  1. PLAVIX [Suspect]
     Dosage: 1 A DAY
     Dates: start: 20050101

REACTIONS (3)
  - INSOMNIA [None]
  - NO THERAPEUTIC RESPONSE [None]
  - PRURITUS [None]
